FAERS Safety Report 9838753 (Version 3)
Quarter: 2014Q2

REPORT INFORMATION
  Report Type: Spontaneous
  Country: GB (occurrence: None)
  Receive Date: 20140116
  Receipt Date: 20140407
  Transmission Date: 20141212
  Serious: Yes (Hospitalization)
  Sender: FDA-Public Use
  Company Number: 2122136

PATIENT
  Age: 63 Year
  Sex: Female

DRUGS (13)
  1. DOCETAXEL [Suspect]
     Indication: BREAST CANCER METASTATIC
     Dosage: (NOT OTHERWISE SPECIFIED)
     Route: 042
     Dates: start: 20131206
  2. PERTUZUMAB [Concomitant]
  3. TRASTUZUMAB [Concomitant]
  4. LORATADINE [Concomitant]
  5. ALENDRONIC ACID [Concomitant]
  6. BUDESONIDE W/FORMOTEROL FUMARATE [Concomitant]
  7. MIRTAZAPINE [Concomitant]
  8. DALTEPARIN [Concomitant]
  9. OMEPRAZOLE [Concomitant]
  10. CALCIUM CARBONATE W/COLECALCIFEROL) [Concomitant]
  11. IBUPROFEN [Concomitant]
  12. CODEINE PHOSPHATE [Concomitant]
  13. DEXAMETHSONE [Concomitant]

REACTIONS (1)
  - Neutropenic sepsis [None]
